FAERS Safety Report 6617691-7 (Version None)
Quarter: 2010Q1

REPORT INFORMATION
  Report Type: 
  Country: None (occurrence: None)
  Receive Date: 20100308
  Receipt Date: 20100222
  Transmission Date: 20100710
  Serious: Yes (Other)
  Sender: FDA-Public Use
  Company Number: PHHY2009AU45686

PATIENT
  Sex: Male

DRUGS (1)
  1. TRILEPTAL [Suspect]
     Dosage: 600 MG, BID

REACTIONS (4)
  - ARRHYTHMIA [None]
  - BRADYCARDIA [None]
  - SICK SINUS SYNDROME [None]
  - SINUS ARREST [None]
